FAERS Safety Report 11360940 (Version 1)
Quarter: 2015Q3

REPORT INFORMATION
  Report Type: Spontaneous
  Country: FR (occurrence: FR)
  Receive Date: 20150810
  Receipt Date: 20150810
  Transmission Date: 20151125
  Serious: Yes (Other)
  Sender: FDA-Public Use
  Company Number: FR-009507513-1508FRA001081

PATIENT
  Age: 42 Year
  Sex: Female
  Weight: 93.5 kg

DRUGS (2)
  1. NEXPLANON [Suspect]
     Active Substance: ETONOGESTREL
     Indication: CONTRACEPTION
     Dosage: UNK
     Route: 059
     Dates: start: 20140505
  2. LEVOTHYROX [Concomitant]
     Active Substance: LEVOTHYROXINE
     Indication: THYROID DISORDER
     Dosage: 100 MICROGRAM, QD
     Dates: start: 2007

REACTIONS (3)
  - Vaginal haemorrhage [Unknown]
  - Amenorrhoea [Recovered/Resolved]
  - Gastrectomy [Unknown]

NARRATIVE: CASE EVENT DATE: 20140505
